FAERS Safety Report 25022710 (Version 1)
Quarter: 2025Q1

REPORT INFORMATION
  Report Type: Spontaneous
  Country: US (occurrence: US)
  Receive Date: 20250228
  Receipt Date: 20250228
  Transmission Date: 20250408
  Serious: Yes (Other)
  Sender: MYLAN
  Company Number: US-MYLANLABS-2025M1017007

PATIENT
  Age: 65 Year
  Sex: Female

DRUGS (12)
  1. ACETAMINOPHEN [Suspect]
     Active Substance: ACETAMINOPHEN
     Indication: Toothache
     Dosage: 500 MILLIGRAM, Q6H
  2. ACETAMINOPHEN [Suspect]
     Active Substance: ACETAMINOPHEN
     Indication: Procedural pain
  3. DEXAMETHASONE [Suspect]
     Active Substance: DEXAMETHASONE
     Indication: Toothache
     Dosage: 4 MILLIGRAM, QH (5 DAY COURSE)
  4. DEXAMETHASONE [Suspect]
     Active Substance: DEXAMETHASONE
     Indication: Procedural pain
  5. GABAPENTIN [Suspect]
     Active Substance: GABAPENTIN
     Indication: Toothache
     Dosage: 300 MILLIGRAM, QD, GABAPENTIN PYRAMID PROTOCOL; 300MG ONCE A DAY ON DAY 1
  6. GABAPENTIN [Suspect]
     Active Substance: GABAPENTIN
     Indication: Procedural pain
     Dosage: 300 MILLIGRAM, BID, 300MG TWICE A DAY ON DAY 2
  7. GABAPENTIN [Suspect]
     Active Substance: GABAPENTIN
     Dosage: 300 MILLIGRAM, TID, 300MG THRICE A DAY ON DAY 3-9
  8. GABAPENTIN [Suspect]
     Active Substance: GABAPENTIN
     Dosage: 300 MILLIGRAM, BID, 300MG TWICE A DAY ON DAY 10-13
  9. GABAPENTIN [Suspect]
     Active Substance: GABAPENTIN
     Dosage: 300 MILLIGRAM, QD, 300MG ONCE A DAY ON DAY 14-18
  10. CALCIUM [Suspect]
     Active Substance: CALCIUM
     Indication: Toothache
  11. CALCIUM [Suspect]
     Active Substance: CALCIUM
     Indication: Procedural pain
  12. NORVASC [Concomitant]
     Active Substance: AMLODIPINE BESYLATE
     Indication: Hypertension
     Dosage: 10 MILLIGRAM, QD

REACTIONS (3)
  - Drug ineffective [Unknown]
  - Somnolence [Recovering/Resolving]
  - Off label use [Unknown]
